FAERS Safety Report 6376538-7 (Version None)
Quarter: 2009Q3

REPORT INFORMATION
  Report Type: 
  Country: None (occurrence: None)
  Receive Date: 20090922
  Receipt Date: 20090922
  Transmission Date: 20100115
  Serious: Yes (Other)
  Sender: FDA-Public Use
  Company Number: None

PATIENT
  Age: 60 Year
  Sex: Female
  Weight: 86.1834 kg

DRUGS (1)
  1. STAHIST TABS [Suspect]
     Indication: BRONCHITIS
     Dosage: T CABLET 2 TIMES A DAY PO
     Route: 048
     Dates: start: 20090907, end: 20090917

REACTIONS (2)
  - DRY EYE [None]
  - VITREOUS DETACHMENT [None]
